FAERS Safety Report 5236477-1 (Version None)
Quarter: 2007Q1

REPORT INFORMATION
  Report Type: 
  Country: None (occurrence: None)
  Receive Date: 20070208
  Receipt Date: 20070127
  Transmission Date: 20070707
  Serious: Yes (Death, Other)
  Sender: FDA-Public Use
  Company Number: 235991

PATIENT
  Age: 39 Year
  Sex: Female

DRUGS (17)
  1. MABTHERA (RITUXIMAB) CONC FOR SOLUTION FOR INFUSION [Suspect]
     Indication: DRUG USE FOR UNKNOWN INDICATION
     Dosage: 1 WEEK
  2. GANCICLOVIR SODIUM [Suspect]
     Indication: DRUG USE FOR UNKNOWN INDICATION
     Dosage: 425 MG
  3. DOXYCYCLINE [Concomitant]
  4. CEFTAZIDIME SODIUM [Concomitant]
  5. FUROSEMIDE [Concomitant]
  6. LOSEC (OMEPRAZOLE) [Concomitant]
  7. MERONEM (MEROPENEM) [Concomitant]
  8. MYCOSTATIN [Concomitant]
  9. ACETAMINOPHEN [Concomitant]
  10. PENTACARINAT (PENTAMIDINE) [Concomitant]
  11. PREDNISOLONE [Concomitant]
  12. CYCLOSPORINE [Concomitant]
  13. SOLU-MEDROL [Concomitant]
  14. SOLU-CORTEF [Concomitant]
  15. TAVEGYL (CLEMASTINE FUMARATE) [Concomitant]
  16. URSO FALK [Concomitant]
  17. VFEND [Concomitant]

REACTIONS (12)
  - ANAPHYLACTIC REACTION [None]
  - BLOOD BILIRUBIN INCREASED [None]
  - CHOLESTASIS [None]
  - CONFUSIONAL STATE [None]
  - CYANOSIS [None]
  - DEPRESSION [None]
  - HALLUCINATION [None]
  - HALLUCINATION, VISUAL [None]
  - LEUKOPENIA [None]
  - MULTI-ORGAN FAILURE [None]
  - RENAL FAILURE ACUTE [None]
  - THROMBOCYTOPENIA [None]
